FAERS Safety Report 10021944 (Version 1)
Quarter: 2014Q1

REPORT INFORMATION
  Report Type: Spontaneous
  Country: US (occurrence: None)
  Receive Date: 20140318
  Receipt Date: 20140318
  Transmission Date: 20141002
  Serious: Yes (Hospitalization)
  Sender: FDA-Public Use
  Company Number: None

PATIENT
  Age: 62 Year
  Sex: Male
  Weight: 83.9 kg

DRUGS (9)
  1. LISINOPRIL [Suspect]
     Route: 048
  2. CLONIDINE [Concomitant]
  3. ASPIRIN [Concomitant]
  4. NITROGLYCERIN [Concomitant]
  5. CYMBALTA [Concomitant]
  6. HYDROCHLOROTHIAZIDE [Concomitant]
  7. ATORVASTATIN [Concomitant]
  8. HYDROCODONE/APAP [Concomitant]
  9. CARVEDILOL [Concomitant]

REACTIONS (1)
  - Angioedema [None]
